FAERS Safety Report 9033002 (Version 1)
Quarter: 2013Q1

REPORT INFORMATION
  Report Type: Spontaneous
  Country: US (occurrence: US)
  Receive Date: 20130128
  Receipt Date: 20130128
  Transmission Date: 20140127
  Serious: Yes (Hospitalization)
  Sender: FDA-Public Use
  Company Number: US-BAYER-2013-009433

PATIENT
  Age: 40 Year
  Sex: Female
  Weight: 103.99 kg

DRUGS (21)
  1. OCELLA [Suspect]
  2. YASMIN [Suspect]
     Indication: MENSTRUATION IRREGULAR
  3. YASMIN [Suspect]
     Indication: POLYCYSTIC OVARIES
  4. NYSTATIN [Concomitant]
     Dosage: 100,000 UNIT/GM
  5. CEFUROXIME [Concomitant]
     Dosage: 500 MG, UNK
  6. AMOXICILLIN SODIUM W/CLAVULANATE POTASSIUM [Concomitant]
     Dosage: 875-125 MG
  7. CHERATUSSIN AC [Concomitant]
  8. BOTOX [Concomitant]
     Dosage: 750 UNITS EVERY 3 MONTHS
  9. SUMATRIPTAN SUCCINATE [Concomitant]
     Dosage: 100 MG, PRN
     Route: 058
  10. METFORMIN HCL [Concomitant]
     Dosage: 1500 MG, HS
     Route: 048
  11. FENTANYL [Concomitant]
     Dosage: 25 MCG/HOUR, EVERY 48 HOURS
     Route: 062
  12. DILAUDID [Concomitant]
     Dosage: 8 MG, PRN
     Route: 048
  13. KLONOPIN [Concomitant]
     Dosage: 0.5 MG 2 TIMES A DAY
     Route: 048
  14. KLONOPIN [Concomitant]
     Dosage: 1 MG TAKE ONE TABLET IN THE MORNING, ONE IN THE EVENING, AND TWO AT BEDTIME
     Route: 048
  15. BACLOFEN [Concomitant]
     Dosage: 20 MG, TID
     Route: 048
  16. SINEMET [Concomitant]
     Dosage: 50/100 MG 3 TIMES A DAY
     Route: 048
  17. SINEMET [Concomitant]
     Dosage: 50/200 MG
     Route: 048
  18. GABAPENTIN [Concomitant]
     Dosage: 600 MG, TID
     Route: 048
  19. CYMBALTA [Concomitant]
     Dosage: 120 MG, DAILY
     Route: 048
  20. IMITREX [Concomitant]
  21. LEVAQUIN [Concomitant]

REACTIONS (3)
  - Pulmonary embolism [None]
  - Deep vein thrombosis [Recovered/Resolved]
  - Pelvic venous thrombosis [Recovered/Resolved]
